FAERS Safety Report 8221745-1 (Version None)
Quarter: 2012Q1

REPORT INFORMATION
  Report Type: 
  Country: None (occurrence: None)
  Receive Date: 20120320
  Receipt Date: 20120320
  Transmission Date: 20120608
  Serious: Yes (Other)
  Sender: FDA-Public Use
  Company Number: None

PATIENT
  Age: 11 Year
  Sex: Male
  Weight: 20.865 kg

DRUGS (1)
  1. INTUNIV [Suspect]
     Indication: ATTENTION DEFICIT/HYPERACTIVITY DISORDER
     Dosage: 3MG
     Route: 048
     Dates: start: 20111001, end: 20120315

REACTIONS (3)
  - FATIGUE [None]
  - SOMNOLENCE [None]
  - HYPERSOMNIA [None]
